FAERS Safety Report 12210170 (Version 2)
Quarter: 2016Q2

REPORT INFORMATION
  Report Type: Spontaneous
  Country: US (occurrence: US)
  Receive Date: 20160325
  Receipt Date: 20160418
  Transmission Date: 20160815
  Serious: No
  Sender: FDA-Public Use
  Company Number: US-PFIZER INC-2016154505

PATIENT
  Age: 62 Year
  Sex: Male
  Weight: 113 kg

DRUGS (17)
  1. WARFARIN [Concomitant]
     Active Substance: WARFARIN
     Indication: ATRIAL FIBRILLATION
  2. DICLOXACILLIN [Concomitant]
     Active Substance: DICLOXACILLIN
     Indication: ABDOMINAL INFECTION
     Dosage: 500 MG, 2X/DAY
     Dates: start: 200909
  3. TYLENOL WITH CODEINE [Concomitant]
     Active Substance: ACETAMINOPHEN\CODEINE PHOSPHATE
     Indication: ARTHRALGIA
     Dosage: 300MG/5MG, 3-4 TIMES A DAY
  4. GABAPENTIN. [Suspect]
     Active Substance: GABAPENTIN
     Dosage: 600 MG, 3X/DAY
     Dates: start: 20160303, end: 20160310
  5. WARFARIN [Concomitant]
     Active Substance: WARFARIN
     Indication: ANTICOAGULANT THERAPY
     Dosage: 8 MG, DAILY
     Dates: start: 200809
  6. PANTOPRAZOLE [Concomitant]
     Active Substance: PANTOPRAZOLE SODIUM
     Indication: OESOPHAGEAL DISORDER
  7. FLOMAX [Concomitant]
     Active Substance: TAMSULOSIN HYDROCHLORIDE
     Indication: MICTURITION DISORDER
     Dosage: 0.4 MG, 1X/DAY, IN THE EVENING
     Dates: start: 2001
  8. LISINOPRIL. [Concomitant]
     Active Substance: LISINOPRIL
     Indication: ARRHYTHMIA
     Dosage: 10 MG, 1X/DAY
     Dates: start: 200701
  9. BUPROPION HCL ER [Concomitant]
     Active Substance: BUPROPION HYDROCHLORIDE
     Indication: ANXIETY
  10. DICLOXACILLIN [Concomitant]
     Active Substance: DICLOXACILLIN
     Indication: PATIENT-DEVICE INCOMPATIBILITY
  11. GABAPENTIN. [Suspect]
     Active Substance: GABAPENTIN
     Indication: ARTHRALGIA
     Dosage: 300 MG, 3X/DAY
     Dates: start: 20160128, end: 20160303
  12. TYLENOL [Concomitant]
     Active Substance: ACETAMINOPHEN
     Indication: ARTHRALGIA
     Dosage: 500 MG, 2-3 TIMES A DAY
     Dates: start: 20160307
  13. METOPROLOL. [Concomitant]
     Active Substance: METOPROLOL
     Indication: ARRHYTHMIA
     Dosage: 50 MG, 2X/DAY
     Dates: start: 200701
  14. BUPROPION HCL ER [Concomitant]
     Active Substance: BUPROPION HYDROCHLORIDE
     Indication: DEPRESSION
     Dosage: 300 MG, 1X/DAY
     Dates: start: 2001
  15. CORTISONE ACETATE. [Suspect]
     Active Substance: CORTISONE ACETATE
     Indication: ARTHRALGIA
     Dosage: UNK
     Dates: start: 20160307
  16. PANTOPRAZOLE [Concomitant]
     Active Substance: PANTOPRAZOLE SODIUM
     Indication: BARRETT^S OESOPHAGUS
     Dosage: 40 MG, 2X/DAY
     Dates: start: 2014
  17. LIPITOR [Concomitant]
     Active Substance: ATORVASTATIN CALCIUM
     Indication: BLOOD CHOLESTEROL
     Dosage: 20 MG, 1X/DAY
     Dates: start: 2006

REACTIONS (2)
  - Fall [Unknown]
  - Chest pain [Not Recovered/Not Resolved]

NARRATIVE: CASE EVENT DATE: 20160308
